FAERS Safety Report 17839080 (Version 1)
Quarter: 2020Q2

REPORT INFORMATION
  Report Type: Spontaneous
  Country: ES (occurrence: ES)
  Receive Date: 20200529
  Receipt Date: 20200529
  Transmission Date: 20200714
  Serious: Yes (Other)
  Sender: FDA-Public Use
  Company Number: ES-AUROBINDO-AUR-APL-2020-026220

PATIENT
  Age: 78 Year
  Sex: Male

DRUGS (9)
  1. AMIODARONE 200 MG TABLET [Suspect]
     Active Substance: AMIODARONE
     Indication: ATRIAL FIBRILLATION
     Route: 048
     Dates: start: 20151111, end: 20200513
  2. FUROSEMIDA [Concomitant]
     Active Substance: FUROSEMIDE
     Indication: MYOCARDIAL ISCHAEMIA
     Dosage: 40MG / 24 H
     Route: 048
  3. SINTROM [Concomitant]
     Active Substance: ACENOCOUMAROL
     Indication: MYOCARDIAL ISCHAEMIA
     Route: 048
     Dates: start: 20151110
  4. FOSITENS [Concomitant]
     Active Substance: FOSINOPRIL SODIUM
     Indication: ESSENTIAL HYPERTENSION
     Route: 048
     Dates: start: 20070308
  5. BACLOFENO [Concomitant]
     Indication: HEMIPLEGIA
     Route: 048
     Dates: start: 20160929
  6. DAPAGLIFLOZIN. [Concomitant]
     Active Substance: DAPAGLIFLOZIN
     Indication: TYPE 2 DIABETES MELLITUS
     Route: 048
     Dates: start: 20150702
  7. MINITRANS [Concomitant]
     Indication: MYOCARDIAL ISCHAEMIA
     Route: 048
     Dates: start: 20070308
  8. ZARATOR [Concomitant]
     Active Substance: ATORVASTATIN CALCIUM
     Indication: HYPERLIPIDAEMIA
     Route: 048
     Dates: start: 20070308
  9. DIANBEN [Concomitant]
     Active Substance: METFORMIN HYDROCHLORIDE
     Indication: TYPE 2 DIABETES MELLITUS
     Route: 048
     Dates: start: 20070308

REACTIONS (2)
  - Blood thyroid stimulating hormone decreased [Recovering/Resolving]
  - Muscular weakness [Recovering/Resolving]

NARRATIVE: CASE EVENT DATE: 20200501
